FAERS Safety Report 17173330 (Version 1)
Quarter: 2019Q4

REPORT INFORMATION
  Report Type: Spontaneous
  Country: US (occurrence: US)
  Receive Date: 20191219
  Receipt Date: 20191219
  Transmission Date: 20200122
  Serious: No
  Sender: FDA-Public Use
  Company Number: US-SUNOVION-2019SUN005370

PATIENT
  Age: 30 Year
  Sex: Female

DRUGS (4)
  1. HALDOL [Concomitant]
     Active Substance: HALOPERIDOL
  2. PROPRANOLOL [Concomitant]
     Active Substance: PROPRANOLOL HYDROCHLORIDE
  3. LAMICTAL [Concomitant]
     Active Substance: LAMOTRIGINE
  4. LATUDA [Suspect]
     Active Substance: LURASIDONE HYDROCHLORIDE
     Indication: BIPOLAR DISORDER
     Dosage: 40 MG
     Route: 048

REACTIONS (2)
  - Akathisia [Not Recovered/Not Resolved]
  - Muscle twitching [Not Recovered/Not Resolved]
